FAERS Safety Report 23292786 (Version 2)
Quarter: 2023Q4

REPORT INFORMATION
  Report Type: Spontaneous
  Country: US (occurrence: US)
  Receive Date: 20231213
  Receipt Date: 20231228
  Transmission Date: 20240109
  Serious: Yes (Other)
  Sender: FDA-Public Use
  Company Number: US-KOWA-23US002355

PATIENT

DRUGS (1)
  1. LIVALO [Suspect]
     Active Substance: PITAVASTATIN CALCIUM
     Indication: Blood cholesterol increased
     Dosage: 1 MG, QD (ONLY TOOK 3 DOSES BEFORE STOPPING)

REACTIONS (5)
  - Gait disturbance [Recovered/Resolved]
  - Asthenia [Recovered/Resolved]
  - Concussion [Unknown]
  - Pain in extremity [Recovered/Resolved]
  - Muscle spasms [Recovered/Resolved]
